FAERS Safety Report 4591043-6 (Version None)
Quarter: 2005Q1

REPORT INFORMATION
  Report Type: 
  Country: None (occurrence: None)
  Receive Date: 20050222
  Receipt Date: 20050222
  Transmission Date: 20050727
  Serious: No
  Sender: FDA-Public Use
  Company Number: None

PATIENT
  Age: 43 Year
  Sex: Male
  Weight: 73.9363 kg

DRUGS (3)
  1. PEGASYS [Suspect]
     Indication: HEPATITIS C
     Dosage: .75 CC  WEEKLY SUBCUTANEOUS
     Route: 058
     Dates: start: 20040401, end: 20041107
  2. RIBAVIRIN [Suspect]
     Indication: HEPATITIS C
     Dosage: 200 MG TWICE DAILY  ORAL
     Route: 048
     Dates: start: 20040401, end: 20041107
  3. CLONOPIN [Concomitant]

REACTIONS (7)
  - CONDITION AGGRAVATED [None]
  - CONTUSION [None]
  - DRUG INEFFECTIVE [None]
  - FATIGUE [None]
  - HEPATIC ENZYME INCREASED [None]
  - NEUTROPENIA [None]
  - PAIN [None]
